FAERS Safety Report 6006502-9 (Version None)
Quarter: 2008Q4

REPORT INFORMATION
  Report Type: 
  Country: None (occurrence: None)
  Receive Date: 20081217
  Receipt Date: 20081124
  Transmission Date: 20090506
  Serious: No
  Sender: FDA-Public Use
  Company Number: US-JNJFOC-20081106045

PATIENT
  Sex: Female
  Weight: 36.29 kg

DRUGS (3)
  1. INVEGA [Suspect]
     Route: 048
  2. INVEGA [Suspect]
     Indication: BIPOLAR DISORDER
     Route: 048
  3. RISPERDAL [Suspect]
     Indication: AUTISM
     Route: 048

REACTIONS (5)
  - ANXIETY [None]
  - DROOLING [None]
  - FEAR OF ANIMALS [None]
  - NOCTURNAL FEAR [None]
  - URINARY INCONTINENCE [None]
